FAERS Safety Report 13790759 (Version 1)
Quarter: 2017Q3

REPORT INFORMATION
  Report Type: Report from Study
  Country: US (occurrence: US)
  Receive Date: 20170725
  Receipt Date: 20170725
  Transmission Date: 20171127
  Serious: No
  Sender: FDA-Public Use
  Company Number: US-IPSEN BIOPHARMACEUTICALS, INC.-2017-00594

PATIENT
  Age: 51 Year
  Sex: Male
  Weight: 102.5 kg

DRUGS (9)
  1. SOMATULINE [Suspect]
     Active Substance: LANREOTIDE ACETATE
     Indication: NEUROENDOCRINE TUMOUR
  2. ERGOCALCIFEROL. [Concomitant]
     Active Substance: ERGOCALCIFEROL
  3. LEVOTHYROXINE. [Concomitant]
     Active Substance: LEVOTHYROXINE
  4. CALCITRIOL. [Concomitant]
     Active Substance: CALCITRIOL
  5. CALCITRIOL. [Concomitant]
     Active Substance: CALCITRIOL
  6. PRAVASTATIN. [Concomitant]
     Active Substance: PRAVASTATIN
  7. STRATTERA [Concomitant]
     Active Substance: ATOMOXETINE HYDROCHLORIDE
  8. SOMATULINE [Suspect]
     Active Substance: LANREOTIDE ACETATE
     Indication: THYROID CANCER
     Dosage: 60 MG
     Route: 058
     Dates: start: 20160718, end: 2016
  9. SOMATULINE [Suspect]
     Active Substance: LANREOTIDE ACETATE
     Indication: OFF LABEL USE
     Dosage: 90 MG
     Route: 058
     Dates: start: 20160916

REACTIONS (8)
  - Headache [Recovered/Resolved]
  - Off label use [Unknown]
  - Drug effect decreased [Unknown]
  - Dizziness [Recovered/Resolved]
  - Decreased appetite [Recovered/Resolved]
  - Gastrointestinal infection [Recovered/Resolved]
  - Nasopharyngitis [Recovered/Resolved]
  - Upper respiratory tract infection [Recovered/Resolved]

NARRATIVE: CASE EVENT DATE: 201610
